FAERS Safety Report 4451629-6 (Version None)
Quarter: 2004Q3

REPORT INFORMATION
  Report Type: 
  Country: None (occurrence: None)
  Receive Date: 20040915
  Receipt Date: 20040831
  Transmission Date: 20050211
  Serious: Yes (Other)
  Sender: FDA-Public Use
  Company Number: S04-GER-03970-01

PATIENT
  Age: 78 Year
  Sex: Female

DRUGS (4)
  1. CITALOPRAM HYDROBROMIDE [Suspect]
     Indication: DRUG USE FOR UNKNOWN INDICATION
  2. PLAVIX [Concomitant]
  3. DICLOFENAC [Concomitant]
  4. SULFONAMIDES [Concomitant]

REACTIONS (2)
  - AGRANULOCYTOSIS [None]
  - MENTAL DISORDER [None]
